FAERS Safety Report 9284347 (Version 1)
Quarter: 2013Q2

REPORT INFORMATION
  Report Type: Report from Study
  Country: GB (occurrence: GB)
  Receive Date: 20130510
  Receipt Date: 20130510
  Transmission Date: 20140414
  Serious: Yes (Death)
  Sender: FDA-Public Use
  Company Number: GB-SANOFI-AVENTIS-2013SA047163

PATIENT
  Sex: 0

DRUGS (5)
  1. FLUOROURACIL [Suspect]
     Indication: COLORECTAL CANCER
     Route: 040
  2. FLUOROURACIL [Suspect]
     Indication: COLORECTAL CANCER
     Dosage: INFUSION FOR 2 DAYS
     Route: 042
  3. OXALIPLATIN [Suspect]
     Indication: COLORECTAL CANCER
     Dosage: OVER 2 H ON DAY 1
     Route: 042
  4. LEUCOVORIN [Suspect]
     Indication: COLORECTAL CANCER
     Dosage: OVER 2H ON DAY 1
     Route: 042
  5. ANTINEOPLASTIC AGENTS [Suspect]
     Indication: COLORECTAL CANCER
     Route: 048

REACTIONS (1)
  - Bronchopneumonia [Fatal]
